FAERS Safety Report 8128314-2 (Version None)
Quarter: 2012Q1

REPORT INFORMATION
  Report Type: 
  Country: None (occurrence: None)
  Receive Date: 20120210
  Receipt Date: 20120207
  Transmission Date: 20120608
  Serious: No
  Sender: FDA-Public Use
  Company Number: US-PFIZER INC-2012033713

PATIENT
  Sex: Male
  Weight: 94.331 kg

DRUGS (9)
  1. ACETYLSALICYLIC ACID [Concomitant]
     Dosage: 81 MG, UNK
  2. ENALAPRIL [Concomitant]
     Dosage: 5 MG, UNK
  3. HYDROCHLOROTHIAZIDE [Concomitant]
     Dosage: 2.5 MG, 2X/DAY
  4. LIPITOR [Suspect]
     Indication: BLOOD CHOLESTEROL INCREASED
     Dosage: 20 MG, 1X/DAY
     Route: 048
     Dates: start: 20100101, end: 20100101
  5. LIPITOR [Suspect]
     Dosage: 40 MG, 1X/DAY
     Route: 048
     Dates: start: 20100101, end: 20120130
  6. FISH OIL [Concomitant]
     Dosage: UNK, 2X/DAY
  7. LIPITOR [Suspect]
     Dosage: 20 MG, 1X/DAY
     Route: 048
     Dates: start: 20120131, end: 20120203
  8. TOPAMAX [Concomitant]
     Dosage: UNK, 2X/DAY
  9. KEPPRA [Concomitant]
     Dosage: UNK, 2X/DAY

REACTIONS (1)
  - BLOOD CHOLESTEROL INCREASED [None]
